FAERS Safety Report 5370651-9 (Version None)
Quarter: 2007Q2

REPORT INFORMATION
  Report Type: 
  Country: None (occurrence: None)
  Receive Date: 20070626
  Receipt Date: 20070615
  Transmission Date: 20071010
  Serious: Yes (Hospitalization)
  Sender: FDA-Public Use
  Company Number: US-ROCHE-502573

PATIENT
  Age: 65 Year
  Sex: Female

DRUGS (2)
  1. BONIVA [Suspect]
     Indication: OSTEOPOROSIS
     Dosage: REPORTED AS THIRD INJECTION RECEIVED ON 23 APRIL 2007.
     Route: 042
  2. REMICADE [Concomitant]

REACTIONS (1)
  - ANAPHYLACTIC REACTION [None]
